FAERS Safety Report 7393862-X (Version None)
Quarter: 2011Q2

REPORT INFORMATION
  Report Type: 
  Country: None (occurrence: None)
  Receive Date: 20110405
  Receipt Date: 20110328
  Transmission Date: 20111010
  Serious: Yes (Other)
  Sender: FDA-Public Use
  Company Number: US-NOVOPROD-325740

PATIENT
  Sex: Female
  Weight: 126.8 kg

DRUGS (3)
  1. VICTOZA [Suspect]
     Indication: WEIGHT DECREASED
  2. VICTOZA [Suspect]
     Indication: TYPE 2 DIABETES MELLITUS
     Dosage: 1.8 MG/ML, QD
     Route: 058
     Dates: start: 20100101
  3. METFORMIN HCL [Concomitant]
     Indication: TYPE 2 DIABETES MELLITUS

REACTIONS (5)
  - SYSTEMIC LUPUS ERYTHEMATOSUS [None]
  - INCREASED APPETITE [None]
  - WEIGHT INCREASED [None]
  - URINE OUTPUT INCREASED [None]
  - POLLAKIURIA [None]
